FAERS Safety Report 9828594 (Version 1)
Quarter: 2014Q1

REPORT INFORMATION
  Report Type: Spontaneous
  Country: US (occurrence: US)
  Receive Date: 20140117
  Receipt Date: 20140117
  Transmission Date: 20141002
  Serious: No
  Sender: FDA-Public Use
  Company Number: US-GILEAD-2014-0092139

PATIENT
  Age: 58 Year
  Sex: Female

DRUGS (4)
  1. SOVALDI [Suspect]
     Indication: HEPATITIS C
     Dosage: 400 MG, TAKEN 10-HRS APART
     Route: 048
     Dates: start: 20140111, end: 20140111
  2. SOVALDI [Suspect]
     Dosage: 400 MG, UNK
     Dates: start: 20140109
  3. RIBAVIRIN [Concomitant]
     Indication: HEPATITIS C
  4. PEGINTERFERON [Concomitant]
     Indication: HEPATITIS C

REACTIONS (1)
  - Accidental overdose [Recovered/Resolved]
